FAERS Safety Report 11155416 (Version 2)
Quarter: 2015Q2

REPORT INFORMATION
  Report Type: Spontaneous
  Country: GB (occurrence: GB)
  Receive Date: 20150602
  Receipt Date: 20150605
  Transmission Date: 20150821
  Serious: Yes (Other)
  Sender: FDA-Public Use
  Company Number: GB-ASTRAZENECA-2015SE51651

PATIENT
  Age: 65 Year
  Sex: Female

DRUGS (1)
  1. OMEPRAZOLE MAGNESIUM. [Suspect]
     Active Substance: OMEPRAZOLE MAGNESIUM
     Indication: DYSPEPSIA
     Route: 048

REACTIONS (8)
  - Infrequent bowel movements [Unknown]
  - Eructation [Unknown]
  - Drug dose omission [Unknown]
  - Abdominal pain upper [Unknown]
  - Dyspepsia [Recovered/Resolved]
  - Withdrawal syndrome [Unknown]
  - Gastrooesophageal reflux disease [Not Recovered/Not Resolved]
  - Chest pain [Unknown]
